FAERS Safety Report 13478980 (Version 1)
Quarter: 2017Q2

REPORT INFORMATION
  Report Type: Report from Study
  Country: US (occurrence: US)
  Receive Date: 20170425
  Receipt Date: 20170425
  Transmission Date: 20170830
  Serious: Yes (Other)
  Sender: FDA-Public Use
  Company Number: US-JNJFOC-20170319153

PATIENT
  Age: 61 Year
  Sex: Female
  Weight: 56.69 kg

DRUGS (14)
  1. SINGULAIR [Concomitant]
     Active Substance: MONTELUKAST SODIUM
  2. REQUIP [Concomitant]
     Active Substance: ROPINIROLE HYDROCHLORIDE
  3. ULTRAM [Concomitant]
     Active Substance: TRAMADOL HYDROCHLORIDE
  4. IMBRUVICA [Suspect]
     Active Substance: IBRUTINIB
     Indication: NEOPLASM MALIGNANT
     Route: 048
     Dates: start: 20160309, end: 20170207
  5. LEXAPRO [Concomitant]
     Active Substance: ESCITALOPRAM OXALATE
  6. PLAVIX [Concomitant]
     Active Substance: CLOPIDOGREL BISULFATE
  7. QVAR [Concomitant]
     Active Substance: BECLOMETHASONE DIPROPIONATE
  8. ISORDIL [Concomitant]
     Active Substance: ISOSORBIDE DINITRATE
  9. LORATADINE. [Concomitant]
     Active Substance: LORATADINE
  10. TOPROL XL [Concomitant]
     Active Substance: METOPROLOL SUCCINATE
  11. ZOCOR [Concomitant]
     Active Substance: SIMVASTATIN
  12. GABAPENTIN. [Concomitant]
     Active Substance: GABAPENTIN
  13. TIZANIDINE. [Concomitant]
     Active Substance: TIZANIDINE
  14. ASPIRIN. [Concomitant]
     Active Substance: ASPIRIN

REACTIONS (3)
  - Faeces discoloured [Recovered/Resolved]
  - Gastrointestinal angiodysplasia haemorrhagic [Recovered/Resolved]
  - Arteriovenous malformation [Unknown]

NARRATIVE: CASE EVENT DATE: 201611
